FAERS Safety Report 11728153 (Version 2)
Quarter: 2015Q4

REPORT INFORMATION
  Report Type: Report from Study
  Country: CA (occurrence: CA)
  Receive Date: 20151112
  Receipt Date: 20151119
  Transmission Date: 20160304
  Serious: Yes (Hospitalization, Other)
  Sender: FDA-Public Use
  Company Number: CA-JNJFOC-20151109261

PATIENT
  Age: 56 Year
  Sex: Male
  Weight: 87.7 kg

DRUGS (8)
  1. CYMBALTA [Concomitant]
     Active Substance: DULOXETINE HYDROCHLORIDE
     Route: 065
  2. COBALAMIN [Concomitant]
     Active Substance: COBALAMIN
     Route: 065
  3. LYRICA [Concomitant]
     Active Substance: PREGABALIN
     Route: 065
  4. HYDROCHLOROTHIAZIDE AND LISINOPRIL [Concomitant]
     Active Substance: HYDROCHLOROTHIAZIDE\LISINOPRIL
     Route: 065
  5. AMLODIPINE [Concomitant]
     Active Substance: AMLODIPINE BESYLATE
     Route: 048
  6. PANTOLOC [Concomitant]
     Active Substance: PANTOPRAZOLE SODIUM
     Route: 048
  7. METHOTREXATE [Concomitant]
     Active Substance: METHOTREXATE
     Route: 058
  8. REMICADE [Suspect]
     Active Substance: INFLIXIMAB
     Indication: CROHN^S DISEASE
     Route: 042

REACTIONS (4)
  - Meningitis viral [Unknown]
  - Opportunistic infection [Recovered/Resolved]
  - Bladder neoplasm [Unknown]
  - Bacterial test [Recovered/Resolved]

NARRATIVE: CASE EVENT DATE: 20151008
